FAERS Safety Report 9286407 (Version 3)
Quarter: 2013Q3

REPORT INFORMATION
  Report Type: Spontaneous
  Country: US (occurrence: US)
  Receive Date: 20130513
  Receipt Date: 20130701
  Transmission Date: 20140515
  Serious: Yes (Other)
  Sender: FDA-Public Use
  Company Number: US-FRI-1000044974

PATIENT
  Age: 0 Day
  Sex: Male

DRUGS (1)
  1. LEXAPRO [Suspect]
     Route: 064
     Dates: end: 20050705

REACTIONS (3)
  - Premature baby [Unknown]
  - Attention deficit/hyperactivity disorder [Not Recovered/Not Resolved]
  - Anxiety [Not Recovered/Not Resolved]
